FAERS Safety Report 6641981-5 (Version None)
Quarter: 2010Q1

REPORT INFORMATION
  Report Type: 
  Country: None (occurrence: None)
  Receive Date: 20100319
  Receipt Date: 20100304
  Transmission Date: 20100710
  Serious: Yes (Hospitalization)
  Sender: FDA-Public Use
  Company Number: GB-JNJFOC-20100302945

PATIENT
  Age: 85 Year
  Sex: Male

DRUGS (6)
  1. REMINYL [Suspect]
     Indication: DEMENTIA
     Route: 048
  2. REMINYL [Suspect]
     Route: 048
  3. REMINYL [Suspect]
     Route: 048
  4. ALFUZOSIN HCL [Concomitant]
     Route: 065
  5. RANITIDINE [Concomitant]
     Route: 065
  6. RANITIDINE [Concomitant]
     Route: 065

REACTIONS (9)
  - ACCIDENTAL OVERDOSE [None]
  - CONFUSIONAL STATE [None]
  - DELIRIUM [None]
  - DRUG DEPENDENCE [None]
  - ENCEPHALITIS [None]
  - ENCEPHALOPATHY [None]
  - MEDICATION ERROR [None]
  - MENINGITIS [None]
  - WITHDRAWAL SYNDROME [None]
